FAERS Safety Report 14682136 (Version 1)
Quarter: 2018Q1

REPORT INFORMATION
  Report Type: Spontaneous
  Country: FR (occurrence: FR)
  Receive Date: 20180326
  Receipt Date: 20180326
  Transmission Date: 20180509
  Serious: Yes (Death)
  Sender: FDA-Public Use
  Company Number: FR-ALLERGAN-1815500US

PATIENT
  Age: 72 Year
  Sex: Female

DRUGS (3)
  1. BRIMONIDINE [Suspect]
     Active Substance: BRIMONIDINE TARTRATE
     Indication: OPEN ANGLE GLAUCOMA
     Dosage: 4 G, QD
     Route: 031
  2. ELIQUIS [Suspect]
     Active Substance: APIXABAN
     Indication: ATRIAL FIBRILLATION
     Dosage: 10 MG, QD
     Route: 048
     Dates: end: 20180215
  3. METOPROLOL (TARTRATE DE) [Suspect]
     Active Substance: METOPROLOL TARTRATE
     Indication: ATRIAL FIBRILLATION
     Dosage: UNK
     Route: 048

REACTIONS (7)
  - Off label use [Unknown]
  - Incorrect route of drug administration [Unknown]
  - Brain herniation [None]
  - Intentional product misuse [None]
  - Cerebral haematoma [None]
  - Subarachnoid haemorrhage [Fatal]
  - Cerebellar haematoma [None]

NARRATIVE: CASE EVENT DATE: 20180216
